FAERS Safety Report 5079122-0 (Version None)
Quarter: 2006Q3

REPORT INFORMATION
  Report Type: 
  Country: None (occurrence: None)
  Receive Date: 20060808
  Receipt Date: 20060726
  Transmission Date: 20061208
  Serious: Yes (Death, Life-Threatening)
  Sender: FDA-Public Use
  Company Number: 2006070226

PATIENT
  Age: 63 Year
  Sex: Male
  Weight: 42 kg

DRUGS (4)
  1. CLINDAMYCIN PHOSPHATE [Suspect]
     Dosage: 600 MG, INTRAVENOUS
     Route: 042
     Dates: start: 20060425, end: 20060425
  2. ROCEPHIN [Suspect]
     Dosage: 2 GRAM (1 GRAM, 2 IN 1 D), INTRAVENOUS
     Route: 042
     Dates: start: 20060424, end: 20060425
  3. MEROPEN (MEROPENEM) [Concomitant]
  4. AMIKACIN [Concomitant]

REACTIONS (7)
  - CONDITION AGGRAVATED [None]
  - DRUG INEFFECTIVE [None]
  - DYSPNOEA [None]
  - MOUTH BREATHING [None]
  - OXYGEN SATURATION DECREASED [None]
  - RASH [None]
  - WHEEZING [None]
